FAERS Safety Report 7861474-7 (Version None)
Quarter: 2011Q4

REPORT INFORMATION
  Report Type: 
  Country: None (occurrence: None)
  Receive Date: 20111027
  Receipt Date: 20111020
  Transmission Date: 20120403
  Serious: Yes (Hospitalization)
  Sender: FDA-Public Use
  Company Number: US-PERRIGO-11US008946

PATIENT
  Age: 40 Year
  Sex: Male

DRUGS (1)
  1. NAPROXEN SODIUM [Suspect]
     Indication: PRODUCT USED FOR UNKNOWN INDICATION
     Dosage: 440 MG, TID
     Route: 048

REACTIONS (9)
  - GASTROINTESTINAL FISTULA [None]
  - CACHEXIA [None]
  - DIARRHOEA [None]
  - GASTRIC ULCER [None]
  - MELAENA [None]
  - OVERDOSE [None]
  - WEIGHT DECREASED [None]
  - GASTRITIS [None]
  - BREATH ODOUR [None]
